FAERS Safety Report 7421064-7 (Version None)
Quarter: 2011Q2

REPORT INFORMATION
  Report Type: 
  Country: None (occurrence: None)
  Receive Date: 20110418
  Receipt Date: 20110414
  Transmission Date: 20111010
  Serious: Yes (Other)
  Sender: FDA-Public Use
  Company Number: HR-ABBOTT-11P-216-0713847-00

PATIENT
  Sex: Male
  Weight: 45 kg

DRUGS (1)
  1. HUMIRA [Suspect]
     Indication: JUVENILE ARTHRITIS
     Route: 058

REACTIONS (2)
  - THYROIDITIS [None]
  - HYPERTHYROIDISM [None]
